FAERS Safety Report 20670915 (Version 1)
Quarter: 2022Q2

REPORT INFORMATION
  Report Type: Spontaneous
  Country: SE (occurrence: SE)
  Receive Date: 20220404
  Receipt Date: 20220404
  Transmission Date: 20220721
  Serious: Yes (Death, Other)
  Sender: FDA-Public Use
  Company Number: None

PATIENT
  Age: 28 Year
  Sex: Female
  Weight: 50 kg

DRUGS (4)
  1. ABILIFY [Interacting]
     Active Substance: ARIPIPRAZOLE
     Indication: Depression
     Dosage: 2 ML, QD
     Route: 048
     Dates: start: 20200706
  2. ABILIFY [Interacting]
     Active Substance: ARIPIPRAZOLE
     Indication: Anxiety
  3. LAMOTRIGINE [Concomitant]
     Active Substance: LAMOTRIGINE
     Indication: Product used for unknown indication
     Dosage: UNK
     Route: 065
  4. BUPROPION [Concomitant]
     Active Substance: BUPROPION
     Indication: Product used for unknown indication
     Dosage: UNK
     Route: 065

REACTIONS (4)
  - Drug interaction [Fatal]
  - Toxicity to various agents [Fatal]
  - Sudden death [Fatal]
  - Product use in unapproved indication [Unknown]

NARRATIVE: CASE EVENT DATE: 20200706
